FAERS Safety Report 20834601 (Version 1)
Quarter: 2022Q2

REPORT INFORMATION
  Report Type: Spontaneous
  Country: AE (occurrence: AE)
  Receive Date: 20220516
  Receipt Date: 20220516
  Transmission Date: 20220721
  Serious: Yes (Other)
  Sender: FDA-Public Use
  Company Number: AE-PFIZER INC-202200682083

PATIENT
  Age: 53 Year
  Sex: Female

DRUGS (10)
  1. XELJANZ [Suspect]
     Active Substance: TOFACITINIB CITRATE
     Dosage: 1 TABLET BY MOUTH TWICE A DAY
     Route: 048
  2. METHOTREXATE [Concomitant]
     Active Substance: METHOTREXATE
     Dosage: 8 TABLETS IN A SPLIT DOSE ON 2 DAYS, 1 HOUR BEFORE OR AFTER FOOD ONCE A WEEK
  3. SULFASALAZINE [Concomitant]
     Active Substance: SULFASALAZINE
     Dosage: 2 TABLETS BY MOUTH TWICE A DAY
     Route: 048
  4. FOLIC ACID [Concomitant]
     Active Substance: FOLIC ACID
     Dosage: 1 TABLET BY MOUTH EVERY DAY
     Route: 048
  5. VITAMIN D3 [Concomitant]
     Active Substance: CHOLECALCIFEROL
     Dosage: 2 CAPSULES BY MOUTH EVERY DAY
     Route: 048
  6. ZOFRAN [Concomitant]
     Active Substance: ONDANSETRON HYDROCHLORIDE
     Dosage: 1 TABLET BY MOUTH THREE TIMES A DAY, ONCE A WEEK, TO BE STARTED 8-12 HOURS BEFORE METHOTREXATE
  7. CELEBREX [Concomitant]
     Active Substance: CELECOXIB
     Dosage: 1 CAPSULE BY MOUTH TWICE A DAY IN AS NEEDED COURSES FOR PAIN
     Route: 048
  8. CRESTOR [Concomitant]
     Active Substance: ROSUVASTATIN CALCIUM
     Dosage: 10 MG, EVERY DAY
  9. FEROGLOBIN [COPPER SULFATE;FERROUS FUMARATE;FOLIC ACID;PYRIDOXINE HYDR [Concomitant]
     Dosage: 2 TABLETS BY MOUTH EVERY DAY, WITH 1/2 GLASS CL ORANGE JUICE, AWAY FROM FOOD
  10. BETAMETHASONE DIPROPIONATE\BETAMETHASONE SODIUM PHOSPHATE [Concomitant]
     Active Substance: BETAMETHASONE DIPROPIONATE\BETAMETHASONE SODIUM PHOSPHATE
     Dosage: 2 CC
     Route: 030
     Dates: start: 20170729

REACTIONS (1)
  - Abortion spontaneous [Unknown]
